FAERS Safety Report 6048921-0 (Version None)
Quarter: 2009Q1

REPORT INFORMATION
  Report Type: 
  Country: None (occurrence: None)
  Receive Date: 20090123
  Receipt Date: 20090119
  Transmission Date: 20090719
  Serious: Yes (Death, Other)
  Sender: FDA-Public Use
  Company Number: JP-BRISTOL-MYERS SQUIBB COMPANY-14349328

PATIENT
  Age: 40 Year
  Sex: Female

DRUGS (6)
  1. TAXOL [Suspect]
     Indication: OVARIAN CANCER
     Dosage: INITIATED ON 16AUG08
     Route: 041
     Dates: start: 20080917, end: 20080917
  2. PARAPLATIN [Suspect]
     Indication: OVARIAN CANCER
     Dosage: INITIATED ON 16AUG08
     Route: 033
     Dates: start: 20080917, end: 20080917
  3. ZOFRAN [Concomitant]
     Indication: ANTIEMETIC SUPPORTIVE CARE
     Route: 041
     Dates: start: 20080917, end: 20080917
  4. DECADRON [Concomitant]
     Indication: PREMEDICATION
     Route: 042
     Dates: start: 20080816, end: 20080917
  5. GASTER [Concomitant]
     Indication: PREMEDICATION
     Route: 041
     Dates: start: 20080816, end: 20080917
  6. DIPHENHYDRAMINE HCL [Concomitant]
     Indication: PREMEDICATION
     Route: 048
     Dates: start: 20080917, end: 20080917

REACTIONS (4)
  - ANAEMIA [None]
  - ANAPHYLACTIC SHOCK [None]
  - DISSEMINATED INTRAVASCULAR COAGULATION [None]
  - GASTRIC HAEMORRHAGE [None]
